FAERS Safety Report 20665608 (Version 1)
Quarter: 2022Q2

REPORT INFORMATION
  Report Type: Spontaneous
  Country: US (occurrence: US)
  Receive Date: 20220402
  Receipt Date: 20220402
  Transmission Date: 20220720
  Serious: No
  Sender: FDA-Public Use
  Company Number: US-NOVARTISTESTPH-NVSC2022US074835

PATIENT
  Age: 71 Year
  Sex: Female

DRUGS (3)
  1. LEQVIO [Suspect]
     Active Substance: INCLISIRAN SODIUM
     Indication: Low density lipoprotein abnormal
     Dosage: 284 MG, ONE SINGLE DOSE
     Route: 058
     Dates: start: 20220303, end: 20220303
  2. LEQVIO [Suspect]
     Active Substance: INCLISIRAN SODIUM
     Dosage: 284MG, ONE SINGLE DOSE
     Route: 058
     Dates: start: 20220307
  3. LEQVIO [Suspect]
     Active Substance: INCLISIRAN SODIUM
     Dosage: 284MG/1.5ML, ONE SINGLE DOSE
     Route: 058
     Dates: start: 20220307

REACTIONS (2)
  - Dyspnoea [Recovered/Resolved]
  - Bronchitis [Unknown]

NARRATIVE: CASE EVENT DATE: 20220303
